FAERS Safety Report 19456650 (Version 1)
Quarter: 2021Q2

REPORT INFORMATION
  Report Type: Report from Study
  Country: FR (occurrence: FR)
  Receive Date: 20210624
  Receipt Date: 20210624
  Transmission Date: 20210717
  Serious: Yes (Other)
  Sender: FDA-Public Use
  Company Number: NVSC2021FR123881

PATIENT
  Sex: Female
  Weight: 71 kg

DRUGS (5)
  1. TRAMADOL. [Concomitant]
     Active Substance: TRAMADOL
     Indication: PAIN
     Dosage: UNK
     Route: 048
  2. PARACETAMOL [Concomitant]
     Active Substance: ACETAMINOPHEN
     Indication: PAIN
     Dosage: 1 G, TID
     Route: 048
     Dates: start: 20201016
  3. INC280 [Suspect]
     Active Substance: CAPMATINIB
     Indication: NON-SMALL CELL LUNG CANCER
     Dosage: 800 MG, QD (400 MG, BID, FILM COATED TABLET)
     Route: 065
     Dates: start: 20201016, end: 20210112
  4. INC280 [Suspect]
     Active Substance: CAPMATINIB
     Dosage: 400 MG, QD (200 MG, BID, FILM COATED TABLET)
     Route: 065
     Dates: start: 20210202, end: 20210221
  5. BISOPROLOL HEMIFUMARATE [Concomitant]
     Active Substance: BISOPROLOL FUMARATE
     Indication: PRODUCT USED FOR UNKNOWN INDICATION
     Dosage: UNK
     Route: 048

REACTIONS (7)
  - Oedema peripheral [Recovered/Resolved]
  - Weight increased [Unknown]
  - Non-small cell lung cancer [Unknown]
  - Malignant neoplasm progression [Unknown]
  - Oedema peripheral [Recovered/Resolved]
  - Off label use [Unknown]
  - Erysipelas [Unknown]

NARRATIVE: CASE EVENT DATE: 20210112
